FAERS Safety Report 11913006 (Version 2)
Quarter: 2016Q1

REPORT INFORMATION
  Report Type: Spontaneous
  Country: US (occurrence: US)
  Receive Date: 20160113
  Receipt Date: 20160202
  Transmission Date: 20160526
  Serious: No
  Sender: FDA-Public Use
  Company Number: US-ROXANE LABORATORIES, INC.-2016-RO-00058RO

PATIENT
  Age: 67 Year
  Sex: Female
  Weight: 57 kg

DRUGS (5)
  1. METHOTREXATE [Suspect]
     Active Substance: METHOTREXATE
     Indication: ANKYLOSING SPONDYLITIS
     Route: 065
     Dates: start: 2011, end: 2015
  2. HYDROXYCHLOROQUINE [Suspect]
     Active Substance: HYDROXYCHLOROQUINE
     Indication: ANKYLOSING SPONDYLITIS
     Route: 065
  3. CELECOXIB. [Suspect]
     Active Substance: CELECOXIB
     Indication: ANKYLOSING SPONDYLITIS
     Dosage: 400 MG
     Route: 065
  4. FOLIC ACID. [Concomitant]
     Active Substance: FOLIC ACID
     Route: 065
  5. REMICADE [Suspect]
     Active Substance: INFLIXIMAB
     Indication: ANKYLOSING SPONDYLITIS
     Route: 042

REACTIONS (1)
  - Rash generalised [Recovered/Resolved]

NARRATIVE: CASE EVENT DATE: 201501
